FAERS Safety Report 18022253 (Version 1)
Quarter: 2020Q3

REPORT INFORMATION
  Report Type: Spontaneous
  Country: US (occurrence: US)
  Receive Date: 20200714
  Receipt Date: 20200714
  Transmission Date: 20201103
  Serious: Yes (Other)
  Sender: FDA-Public Use
  Company Number: US-PURDUE-USA-2020-0156868

PATIENT
  Sex: Male

DRUGS (15)
  1. OXYCODONE HCL TABLETS (RHODES 91?490) [Suspect]
     Active Substance: OXYCODONE HYDROCHLORIDE
     Indication: GOUT
     Dosage: UNK
     Route: 048
     Dates: start: 1997
  2. TRAMADOL. [Suspect]
     Active Substance: TRAMADOL
     Indication: GOUT
     Dosage: UNK
     Route: 065
     Dates: start: 1997
  3. FENTANYL. [Suspect]
     Active Substance: FENTANYL
     Indication: GOUT
     Dosage: UNK
     Route: 065
     Dates: start: 1997
  4. HYDROMORPHONE TABLET (RHODES) [Suspect]
     Active Substance: HYDROMORPHONE
     Indication: GOUT
     Dosage: UNK
     Route: 048
     Dates: start: 1997
  5. ROXICODONE [Suspect]
     Active Substance: OXYCODONE HYDROCHLORIDE
     Indication: GOUT
     Dosage: UNK
     Route: 065
     Dates: start: 1997
  6. OXYCONTIN [Suspect]
     Active Substance: OXYCODONE HYDROCHLORIDE
     Indication: GOUT
     Dosage: UNK
     Route: 048
     Dates: start: 1997
  7. OXYCODONE HCL CR TABLETS (SIMILAR TO NDA 22?272) [Suspect]
     Active Substance: OXYCODONE HYDROCHLORIDE
     Indication: GOUT
     Dosage: UNK
     Route: 048
     Dates: start: 1997
  8. OXYCODONE/ ACETAMINOPHEN TABLETS [Suspect]
     Active Substance: ACETAMINOPHEN\OXYCODONE HYDROCHLORIDE
     Indication: GOUT
     Dosage: UNK
     Route: 048
     Dates: start: 1997
  9. DILAUDID [Suspect]
     Active Substance: HYDROMORPHONE HYDROCHLORIDE
     Indication: GOUT
     Dosage: UNK
     Route: 048
     Dates: start: 2007
  10. MS CONTIN [Suspect]
     Active Substance: MORPHINE SULFATE
     Indication: GOUT
     Dosage: UNK
     Route: 048
     Dates: start: 1997
  11. HYDROCODONE BITARTRATE AND ACETAMINOPHEN [Suspect]
     Active Substance: ACETAMINOPHEN\HYDROCODONE BITARTRATE
     Indication: GOUT
     Dosage: UNK
     Route: 048
     Dates: start: 1997
  12. OXYIR [Suspect]
     Active Substance: OXYCODONE HYDROCHLORIDE
     Indication: GOUT
     Dosage: UNK
     Route: 048
     Dates: start: 1997
  13. MORPHINE SULFATE EXTENDED?RELEASE TABLETS (RHODES 74?769, 74?862) [Suspect]
     Active Substance: MORPHINE SULFATE
     Indication: GOUT
     Dosage: UNKNOWN
     Route: 048
     Dates: start: 1997
  14. PERCOCET [Suspect]
     Active Substance: ACETAMINOPHEN\OXYCODONE HYDROCHLORIDE
     Indication: GOUT
     Dosage: UNK
     Route: 065
     Dates: start: 1997
  15. VICODIN [Suspect]
     Active Substance: ACETAMINOPHEN\HYDROCODONE BITARTRATE
     Indication: GOUT
     Dosage: UNK
     Route: 065
     Dates: start: 1997

REACTIONS (3)
  - Withdrawal syndrome [Unknown]
  - Drug dependence [Unknown]
  - Psychotic disorder [Unknown]
